FAERS Safety Report 5032834-7 (Version None)
Quarter: 2006Q2

REPORT INFORMATION
  Report Type: 
  Country: None (occurrence: None)
  Receive Date: 20060428
  Receipt Date: 20051229
  Transmission Date: 20061013
  Serious: Yes (Other)
  Sender: FDA-Public Use
  Company Number: 200511771BBE

PATIENT

DRUGS (1)
  1. GAMUNEX [Suspect]
     Dosage: 210 G, ONCE, INTRAVENOUS
     Route: 042
     Dates: start: 20050923

REACTIONS (1)
  - HEADACHE [None]
